FAERS Safety Report 6045513-4 (Version None)
Quarter: 2009Q1

REPORT INFORMATION
  Report Type: 
  Country: None (occurrence: None)
  Receive Date: 20090121
  Receipt Date: 20090116
  Transmission Date: 20090719
  Serious: Yes (Hospitalization)
  Sender: FDA-Public Use
  Company Number: A0764206A

PATIENT
  Age: 66 Year
  Sex: Male
  Weight: 129.5 kg

DRUGS (4)
  1. AVANDIA [Suspect]
     Dosage: 4MG TWICE PER DAY
     Route: 048
     Dates: start: 20040201, end: 20070501
  2. GLARGINE [Concomitant]
     Dates: start: 20060701
  3. GLUCOTROL [Concomitant]
     Dates: start: 20070101
  4. COREG [Concomitant]
     Dates: start: 20060701, end: 20080201

REACTIONS (5)
  - CARDIAC FAILURE CONGESTIVE [None]
  - MYOCARDIAL INFARCTION [None]
  - OEDEMA PERIPHERAL [None]
  - VISUAL ACUITY REDUCED [None]
  - WEIGHT INCREASED [None]
